FAERS Safety Report 7594441-1 (Version None)
Quarter: 2011Q3

REPORT INFORMATION
  Report Type: 
  Country: None (occurrence: None)
  Receive Date: 20110707
  Receipt Date: 20110704
  Transmission Date: 20111222
  Serious: Yes (Other)
  Sender: FDA-Public Use
  Company Number: DE-BRISTOL-MYERS SQUIBB COMPANY-15873730

PATIENT
  Age: 75 Year
  Sex: Female

DRUGS (3)
  1. IBUPROFEN [Suspect]
     Indication: RHEUMATOID ARTHRITIS
  2. METHOTREXATE [Suspect]
     Indication: RHEUMATOID ARTHRITIS
  3. ORENCIA [Suspect]
     Indication: RHEUMATOID ARTHRITIS
     Dosage: NO OF INF:6
     Route: 042

REACTIONS (2)
  - EXTRASYSTOLES [None]
  - ATRIAL FIBRILLATION [None]
